FAERS Safety Report 6354654-3 (Version None)
Quarter: 2009Q3

REPORT INFORMATION
  Report Type: 
  Country: None (occurrence: None)
  Receive Date: 20090914
  Receipt Date: 20090904
  Transmission Date: 20100115
  Serious: Yes (Hospitalization, Other)
  Sender: FDA-Public Use
  Company Number: US-AMGEN-QUU360591

PATIENT
  Sex: Male
  Weight: 61.7 kg

DRUGS (14)
  1. NEULASTA [Suspect]
     Indication: CHEMOTHERAPY
     Route: 058
     Dates: start: 20090717, end: 20090808
  2. PROTONIX [Concomitant]
  3. TEMAZEPAM [Concomitant]
     Dates: start: 20090601
  4. WARFARIN SODIUM [Concomitant]
     Dates: start: 20090710
  5. CARBOPLATIN [Concomitant]
     Route: 042
     Dates: start: 20090528, end: 20090806
  6. TAXOL [Concomitant]
     Route: 042
     Dates: start: 20090528, end: 20090806
  7. UNSPECIFIED PAIN MEDICATION [Concomitant]
  8. ANZEMET [Concomitant]
     Dates: start: 20090528, end: 20090806
  9. BENADRYL [Concomitant]
     Route: 042
     Dates: start: 20090528, end: 20090806
  10. DEXAMETHASONE [Concomitant]
     Route: 042
     Dates: start: 20090528, end: 20090806
  11. CIMETIDINE [Concomitant]
     Route: 042
     Dates: start: 20090528, end: 20090806
  12. ACETAMINOPHEN AND HYDROCODONE BITARTRATE [Concomitant]
     Dates: start: 20090710, end: 20090817
  13. OXYCODONE HYDROCHLORIDE AND ACETAMINOPHEN [Concomitant]
     Dates: start: 20090817
  14. OXYCONTIN [Concomitant]
     Dates: start: 20090713

REACTIONS (21)
  - ALOPECIA [None]
  - BONE PAIN [None]
  - CACHEXIA [None]
  - CARCINOID TUMOUR PULMONARY [None]
  - DRUG ERUPTION [None]
  - DYSPNOEA [None]
  - HEART RATE INCREASED [None]
  - HYPERSENSITIVITY [None]
  - INFECTION [None]
  - LEUKOCYTOSIS [None]
  - LUNG INFILTRATION [None]
  - MALIGNANT NEOPLASM PROGRESSION [None]
  - METASTASIS [None]
  - MOOD ALTERED [None]
  - NEUTROPHIL FUNCTION DISORDER [None]
  - PERFORMANCE STATUS DECREASED [None]
  - PULMONARY EMBOLISM [None]
  - PYREXIA [None]
  - RASH [None]
  - RASH MORBILLIFORM [None]
  - RESPIRATORY FAILURE [None]
